FAERS Safety Report 5476144-2 (Version None)
Quarter: 2007Q4

REPORT INFORMATION
  Report Type: 
  Country: None (occurrence: None)
  Receive Date: 20071003
  Receipt Date: 20070926
  Transmission Date: 20080405
  Serious: Yes (Other)
  Sender: FDA-Public Use
  Company Number: US-JNJFOC-20070905866

PATIENT
  Age: 82 Year
  Sex: Female
  Weight: 77.11 kg

DRUGS (5)
  1. TYLENOL (CAPLET) [Suspect]
  2. TYLENOL (CAPLET) [Suspect]
     Indication: ARTHRITIS
  3. FOSAMAX [Concomitant]
     Indication: OSTEOPOROSIS
  4. DIOVAN [Concomitant]
     Indication: HYPERTENSION
  5. SIMVASTATIN [Concomitant]
     Indication: BLOOD CHOLESTEROL INCREASED

REACTIONS (1)
  - FOREIGN BODY TRAUMA [None]
